FAERS Safety Report 6405660-1 (Version None)
Quarter: 2009Q4

REPORT INFORMATION
  Report Type: 
  Country: None (occurrence: None)
  Receive Date: 20091019
  Receipt Date: 20091013
  Transmission Date: 20100525
  Serious: Yes (Other)
  Sender: FDA-Public Use
  Company Number: B0597989A

PATIENT
  Sex: Male

DRUGS (2)
  1. RELENZA [Suspect]
     Indication: INFLUENZA
     Dosage: 5MG TWICE PER DAY
     Route: 055
     Dates: start: 20090914, end: 20090918
  2. CALONAL [Concomitant]
     Dosage: 400MG THREE TIMES PER DAY
     Route: 065
     Dates: start: 20090914, end: 20090918

REACTIONS (1)
  - ANAPHYLACTIC REACTION [None]
